FAERS Safety Report 18587324 (Version 2)
Quarter: 2021Q1

REPORT INFORMATION
  Report Type: Spontaneous
  Country: US (occurrence: US)
  Receive Date: 20201207
  Receipt Date: 20210105
  Transmission Date: 20210419
  Serious: Yes (Other)
  Sender: FDA-Public Use
  Company Number: US-TEVA-2020-US-1856337

PATIENT
  Age: 9 Month
  Sex: Female

DRUGS (7)
  1. MELPHALAN. [Suspect]
     Active Substance: MELPHALAN
     Dosage: SELECTIVE OPHTHALMIC ARTERY INFUSION CHEMOTHERAPY (SOAIC); ALONG WITH CARBOPLATIN AND TOPOTECAN; ...
     Route: 050
  2. CARBOPLATIN. [Suspect]
     Active Substance: CARBOPLATIN
     Indication: CONGENITAL RETINOBLASTOMA
     Dosage: SELECTIVE OPHTHALMIC ARTERY INFUSION CHEMOTHERAPY (SOAIC); ALONG WITH MELPHALAN AND TOPOTECAN
     Route: 050
  3. CARBOPLATIN. [Suspect]
     Active Substance: CARBOPLATIN
     Route: 042
  4. ETOPOSIDE. [Suspect]
     Active Substance: ETOPOSIDE
     Indication: CONGENITAL RETINOBLASTOMA
     Route: 042
  5. MELPHALAN. [Suspect]
     Active Substance: MELPHALAN
     Indication: CONGENITAL RETINOBLASTOMA
     Dosage: THREE CYCLES; SELECTIVE OPHTHALMIC ARTERY INFUSION CHEMOTHERAPY (SOAIC)
     Route: 050
  6. TOPOTECAN [Suspect]
     Active Substance: TOPOTECAN HYDROCHLORIDE
     Indication: CONGENITAL RETINOBLASTOMA
     Dosage: SELECTIVE OPHTHALMIC ARTERY INFUSION CHEMOTHERAPY (SOAIC); ALONG WITH CARBOPLATIN AND MELPHALAN
     Route: 050
  7. VINCRISTINE [Suspect]
     Active Substance: VINCRISTINE
     Indication: CONGENITAL RETINOBLASTOMA
     Route: 042

REACTIONS (1)
  - Myelosuppression [Unknown]
